FAERS Safety Report 24297310 (Version 6)
Quarter: 2025Q3

REPORT INFORMATION
  Report Type: Report from Study
  Country: GB (occurrence: GB)
  Receive Date: 20240909
  Receipt Date: 20250704
  Transmission Date: 20251021
  Serious: Yes (Hospitalization, Other)
  Sender: TAKEDA
  Company Number: GB-TAKEDA-2024TUS089263

PATIENT
  Sex: Male

DRUGS (2)
  1. VEDOLIZUMAB [Suspect]
     Active Substance: VEDOLIZUMAB
     Indication: Colitis ulcerative
     Dosage: 108 MILLIGRAM, Q2WEEKS
  2. VEDOLIZUMAB [Suspect]
     Active Substance: VEDOLIZUMAB

REACTIONS (8)
  - Seizure [Not Recovered/Not Resolved]
  - Lower respiratory tract infection [Unknown]
  - Pneumonia [Unknown]
  - Memory impairment [Unknown]
  - Visual impairment [Unknown]
  - Hypoacusis [Unknown]
  - Malaise [Recovered/Resolved]
  - Fatigue [Recovered/Resolved]
